FAERS Safety Report 15377629 (Version 1)
Quarter: 2018Q3

REPORT INFORMATION
  Report Type: Spontaneous
  Country: US (occurrence: US)
  Receive Date: 20180906
  Receipt Date: 20180906
  Transmission Date: 20181010
  Serious: No
  Sender: FDA-Public Use
  Company Number: None

PATIENT
  Age: 75 Year
  Sex: Female
  Weight: 45.81 kg

DRUGS (12)
  1. LEUCOROVIN [Concomitant]
  2. EMLA [Concomitant]
     Active Substance: LIDOCAINE\PRILOCAINE
  3. MAGNESIUM [Concomitant]
     Active Substance: MAGNESIUM
  4. ONDANSETRON [Concomitant]
     Active Substance: ONDANSETRON
  5. IRINOTECAN [Concomitant]
     Active Substance: IRINOTECAN
  6. AVASTIN [Concomitant]
     Active Substance: BEVACIZUMAB
  7. ATIVAN [Concomitant]
     Active Substance: LORAZEPAM
  8. ALOXI [Concomitant]
     Active Substance: PALONOSETRON HYDROCHLORIDE
  9. LONSURF [Suspect]
     Active Substance: TIPIRACIL HYDROCHLORIDE\TRIFLURIDINE
     Indication: COLON CANCER
     Route: 048
     Dates: start: 20180809
  10. FLUOROURACIL. [Concomitant]
     Active Substance: FLUOROURACIL
  11. OXALIPLATIN. [Concomitant]
     Active Substance: OXALIPLATIN
  12. PROCHLORPERAZINE. [Concomitant]
     Active Substance: PROCHLORPERAZINE

REACTIONS (1)
  - Nausea [None]
